FAERS Safety Report 7998059-8 (Version None)
Quarter: 2011Q4

REPORT INFORMATION
  Report Type: 
  Country: None (occurrence: None)
  Receive Date: 20111221
  Receipt Date: 20101223
  Transmission Date: 20120403
  Serious: No
  Sender: FDA-Public Use
  Company Number: US-GLAXOSMITHKLINE-A0901429A

PATIENT
  Age: 82 Year
  Sex: Female

DRUGS (5)
  1. LOVAZA [Suspect]
     Indication: BLOOD CHOLESTEROL
     Dosage: 1CAP PER DAY
     Route: 048
     Dates: start: 20100101, end: 20100101
  2. ALLOPURINOL [Concomitant]
  3. POTASSIUM [Concomitant]
  4. MAGNESIUM [Concomitant]
  5. VITAMIN D [Concomitant]

REACTIONS (1)
  - PRURITUS GENERALISED [None]
